FAERS Safety Report 8455289-9 (Version None)
Quarter: 2012Q2

REPORT INFORMATION
  Report Type: 
  Country: None (occurrence: None)
  Receive Date: 20120621
  Receipt Date: 20120613
  Transmission Date: 20120825
  Serious: Yes (Other)
  Sender: FDA-Public Use
  Company Number: AU-ABBOTT-11P-008-0884502-00

PATIENT
  Sex: Male
  Weight: 96 kg

DRUGS (1)
  1. LEUPROLIDE ACETATE [Suspect]
     Indication: PROSTATE CANCER
     Dosage: 30MG IMI 4 MONTHS
     Dates: start: 20110801

REACTIONS (2)
  - INJECTION SITE PAIN [None]
  - SKIN CANCER [None]
